FAERS Safety Report 18398766 (Version 2)
Quarter: 2021Q1

REPORT INFORMATION
  Report Type: Report from Study
  Country: IT (occurrence: IT)
  Receive Date: 20201019
  Receipt Date: 20210107
  Transmission Date: 20210419
  Serious: Yes (Other)
  Sender: FDA-Public Use
  Company Number: IT-GLAXOSMITHKLINE-IT2020GSK203223

PATIENT
  Age: 57 Year
  Sex: Female
  Weight: 62 kg

DRUGS (6)
  1. NIRAPARIB [Suspect]
     Active Substance: NIRAPARIB
     Indication: OVARIAN CANCER
     Dosage: 200 MG, Z (CONTINUOUSLY)
     Route: 048
     Dates: start: 20200224, end: 20200315
  2. LOBIVON [Concomitant]
     Active Substance: NEBIVOLOL HYDROCHLORIDE
     Indication: HYPERTENSION
     Dosage: 5 MG, U
     Route: 048
     Dates: start: 20170630
  3. SIMVASTATINE [Concomitant]
     Active Substance: SIMVASTATIN
     Indication: HYPERCHOLESTEROLAEMIA
     Dosage: 20 MG, U
     Route: 048
     Dates: start: 20150630
  4. GANETESPIB [Suspect]
     Active Substance: GANETESPIB
     Indication: OVARIAN CANCER
     Dosage: 150 MG, Z (D1Q21)
     Route: 042
     Dates: start: 20190813, end: 20191231
  5. NIRAPARIB [Suspect]
     Active Substance: NIRAPARIB
     Dosage: 100 MG, Z (CONTINUOUSLY)
     Route: 048
     Dates: start: 20200406
  6. CARBOPLATIN (NON?GSK COMPARATOR) [Suspect]
     Active Substance: CARBOPLATIN
     Indication: OVARIAN CANCER
     Dosage: UNK (5 AUC), D1Q21
     Route: 042
     Dates: start: 20190813, end: 20191231

REACTIONS (1)
  - Platelet count decreased [Recovered/Resolved]

NARRATIVE: CASE EVENT DATE: 20200316
